FAERS Safety Report 4794922-X (Version None)
Quarter: 2005Q3

REPORT INFORMATION
  Report Type: 
  Country: None (occurrence: None)
  Receive Date: 20050914
  Receipt Date: 20040830
  Transmission Date: 20060218
  Serious: Yes (Other)
  Sender: FDA-Public Use
  Company Number: 163-20785-04080610

PATIENT
  Sex: Male

DRUGS (3)
  1. THALOMID [Suspect]
     Indication: COLON CANCER
     Dosage: 200 MG, DAILY, ORAL
     Route: 048
     Dates: start: 20020215
  2. COUMADIN [Concomitant]
  3. HEPARIN [Concomitant]

REACTIONS (1)
  - TRANSIENT ISCHAEMIC ATTACK [None]
